FAERS Safety Report 11710559 (Version 2)
Quarter: 2015Q4

REPORT INFORMATION
  Report Type: Spontaneous
  Country: US (occurrence: US)
  Receive Date: 20151104
  Receipt Date: 20151110
  Transmission Date: 20160304
  Serious: No
  Sender: FDA-Public Use
  Company Number: US-ELI_LILLY_AND_COMPANY-US201109002263

PATIENT
  Age: 64 Year
  Sex: Female

DRUGS (6)
  1. FORTEO [Suspect]
     Active Substance: TERIPARATIDE
     Dosage: 20 UG, QD
     Route: 065
     Dates: end: 201111
  2. FORTEO [Suspect]
     Active Substance: TERIPARATIDE
     Dosage: 5 IU, QOD
     Route: 065
     Dates: start: 20120106
  3. FORTEO [Suspect]
     Active Substance: TERIPARATIDE
     Dosage: 5 IU, QD
     Dates: end: 20120125
  4. FORTEO [Suspect]
     Active Substance: TERIPARATIDE
     Indication: OSTEOPOROSIS
     Dosage: 20 UG, QD
     Route: 065
     Dates: start: 201108
  5. FORTEO [Suspect]
     Active Substance: TERIPARATIDE
     Dosage: 20 UG, QD
     Route: 065
  6. FORTEO [Suspect]
     Active Substance: TERIPARATIDE
     Dosage: 5 IU, QD
     Route: 065

REACTIONS (14)
  - Communication disorder [Unknown]
  - Road traffic accident [Unknown]
  - Injection site erythema [Unknown]
  - Somnolence [Unknown]
  - Intentional product misuse [Unknown]
  - Neck pain [Unknown]
  - Fatigue [Not Recovered/Not Resolved]
  - Confusional state [Recovering/Resolving]
  - Bone pain [Unknown]
  - Thinking abnormal [Unknown]
  - Injection site pain [Unknown]
  - Back pain [Unknown]
  - Anxiety [Unknown]
  - Drug prescribing error [Unknown]

NARRATIVE: CASE EVENT DATE: 20120125
